FAERS Safety Report 16646824 (Version 2)
Quarter: 2020Q2

REPORT INFORMATION
  Report Type: Spontaneous
  Country: PL (occurrence: PL)
  Receive Date: 20190730
  Receipt Date: 20200427
  Transmission Date: 20200713
  Serious: Yes (Hospitalization, Other)
  Sender: FDA-Public Use
  Company Number: PL-PFIZER INC-2019317440

PATIENT
  Age: 35 Year
  Sex: Female
  Weight: 58 kg

DRUGS (13)
  1. ENCORTON [Suspect]
     Active Substance: PREDNISONE
     Indication: RHEUMATOID ARTHRITIS
     Dosage: 15 MG, QD (EVERY DAY)
     Route: 065
     Dates: start: 201907
  2. ERELZI [Suspect]
     Active Substance: ETANERCEPT-SZZS
     Dosage: 50 MG, QW (EVERY WEEK)
     Route: 058
     Dates: start: 20181210, end: 20190603
  3. BENEPALI [Suspect]
     Active Substance: ETANERCEPT
     Dosage: UNK
     Route: 065
     Dates: start: 201809, end: 201812
  4. ERELZI [Suspect]
     Active Substance: ETANERCEPT-SZZS
     Indication: RHEUMATOID ARTHRITIS
     Dosage: 50 MG, UNK
     Route: 042
     Dates: start: 201609
  5. ERELZI [Suspect]
     Active Substance: ETANERCEPT-SZZS
     Dosage: 50 MG, QW (EVERY WEEK)
     Route: 058
     Dates: start: 20181210, end: 20190603
  6. PLAQUENIL S [Suspect]
     Active Substance: HYDROXYCHLOROQUINE SULFATE
     Indication: RHEUMATOID ARTHRITIS
     Dosage: 20 MG, 1X/DAY; QD
     Dates: start: 201907, end: 201907
  7. INSULIN [Concomitant]
     Active Substance: INSULIN NOS
     Indication: TYPE 1 DIABETES MELLITUS
     Dosage: UNK
     Route: 065
  8. FOLIC ACID. [Concomitant]
     Active Substance: FOLIC ACID
     Dosage: UNK
  9. SULFASALAZINE. [Suspect]
     Active Substance: SULFASALAZINE
     Indication: RHEUMATOID ARTHRITIS
     Dosage: UNK
     Route: 065
  10. METEX [METHOTREXATE SODIUM] [Concomitant]
     Active Substance: METHOTREXATE SODIUM
     Indication: DIABETES MELLITUS
     Dosage: UNK (THE LAST INJECTION IN JAN-2019)
     Route: 058
     Dates: start: 201901
  11. ENCORTON [Suspect]
     Active Substance: PREDNISONE
     Dosage: 10 MG, QD (EVERY DAY)
     Route: 065
  12. ENBREL [Suspect]
     Active Substance: ETANERCEPT
     Indication: RHEUMATOID ARTHRITIS
     Dosage: UNK
     Dates: start: 2016, end: 20190527
  13. METHOTREXATE. [Suspect]
     Active Substance: METHOTREXATE
     Indication: RHEUMATOID ARTHRITIS
     Dosage: 15 MG, QW
     Route: 065
     Dates: start: 2010, end: 201912

REACTIONS (5)
  - Erythema nodosum [Unknown]
  - Ultrasound scan abnormal [Unknown]
  - Maternal exposure during pregnancy [Unknown]
  - Cholestasis of pregnancy [Unknown]
  - Normal newborn [Unknown]

NARRATIVE: CASE EVENT DATE: 20190103
